FAERS Safety Report 8837098 (Version 1)
Quarter: 2012Q4

REPORT INFORMATION
  Report Type: Report from Study
  Country: US (occurrence: US)
  Receive Date: 20121011
  Receipt Date: 20121011
  Transmission Date: 20130627
  Serious: Yes (Other)
  Sender: FDA-Public Use
  Company Number: US-ROCHE-752513

PATIENT
  Sex: Female

DRUGS (2)
  1. AVASTIN [Suspect]
     Indication: VENOUS OCCLUSION
     Route: 065
  2. RANIBIZUMAB [Suspect]
     Indication: PRODUCT USED FOR UNKNOWN INDICATION
     Dosage: 1.25 MG, Q3M
     Route: 031

REACTIONS (5)
  - Transient ischaemic attack [Unknown]
  - Blood pressure increased [Unknown]
  - Paraesthesia [Unknown]
  - Photophobia [Unknown]
  - Eye pain [Unknown]
